FAERS Safety Report 20799156 (Version 3)
Quarter: 2022Q2

REPORT INFORMATION
  Report Type: Report from Study
  Country: NO (occurrence: NO)
  Receive Date: 20220508
  Receipt Date: 20220528
  Transmission Date: 20220721
  Serious: Yes (Life-Threatening, Hospitalization, Other)
  Sender: FDA-Public Use
  Company Number: NO-BRISTOL-MYERS SQUIBB COMPANY-2022-035091

PATIENT
  Age: 74 Year
  Sex: Male

DRUGS (5)
  1. NIVOLUMAB [Suspect]
     Active Substance: NIVOLUMAB
     Indication: Mesothelioma malignant
     Route: 042
     Dates: start: 20220131, end: 20220411
  2. IPILIMUMAB [Suspect]
     Active Substance: IPILIMUMAB
     Indication: Mesothelioma malignant
     Route: 042
     Dates: start: 20220131, end: 20220315
  3. ALLOPURINOL [Concomitant]
     Active Substance: ALLOPURINOL
     Indication: Product used for unknown indication
     Dates: start: 20060101
  4. CRESTOR [Concomitant]
     Active Substance: ROSUVASTATIN CALCIUM
     Indication: Product used for unknown indication
     Dates: start: 20060101
  5. ELIQUIS [Concomitant]
     Active Substance: APIXABAN
     Indication: Product used for unknown indication
     Dates: start: 20150101

REACTIONS (2)
  - Anaphylactic reaction [Unknown]
  - Contrast media allergy [Unknown]

NARRATIVE: CASE EVENT DATE: 20220426
